FAERS Safety Report 4560381-5 (Version None)
Quarter: 2005Q1

REPORT INFORMATION
  Report Type: 
  Country: None (occurrence: None)
  Receive Date: 20050125
  Receipt Date: 20050114
  Transmission Date: 20050727
  Serious: Yes (Life-Threatening)
  Sender: FDA-Public Use
  Company Number: AU-JNJFOC-20050104059

PATIENT
  Sex: Female

DRUGS (2)
  1. TRAMAL [Suspect]
     Indication: DRUG USE FOR UNKNOWN INDICATION
     Route: 049
  2. VIOXX [Concomitant]
     Route: 065

REACTIONS (3)
  - HEADACHE [None]
  - OEDEMA PERIPHERAL [None]
  - PAIN [None]
